FAERS Safety Report 5564038-3 (Version None)
Quarter: 2007Q4

REPORT INFORMATION
  Report Type: 
  Country: None (occurrence: None)
  Receive Date: 20071217
  Receipt Date: 20071126
  Transmission Date: 20080405
  Serious: No
  Sender: FDA-Public Use
  Company Number: US-BOEHRINGER INGELHEIM PHARMACEUTICALS, INC.-2007-BP-25026BP

PATIENT
  Sex: Female

DRUGS (10)
  1. MIRAPEX [Suspect]
     Indication: RESTLESS LEGS SYNDROME
     Dosage: Q HS
     Route: 048
     Dates: start: 20071101, end: 20071101
  2. VICODIN [Concomitant]
     Indication: ARTHRALGIA
  3. POTASSIUM CHLORIDE [Concomitant]
  4. PREMARIN [Concomitant]
  5. METOPROLOL [Concomitant]
     Indication: HYPERTENSION
  6. VOLTAREN [Concomitant]
     Indication: ARTHRITIS
  7. LISINOPRIL [Concomitant]
     Indication: HYPERTENSION
  8. VYTORIN [Concomitant]
     Indication: BLOOD CHOLESTEROL INCREASED
  9. TRIAMTERENE [Concomitant]
     Indication: HYPERTENSION
  10. CYTOTEC [Concomitant]
     Indication: PROPHYLAXIS

REACTIONS (4)
  - DRUG INEFFECTIVE [None]
  - DYSKINESIA [None]
  - MUSCLE TWITCHING [None]
  - TIC [None]
